FAERS Safety Report 8810076 (Version 3)
Quarter: 2013Q1

REPORT INFORMATION
  Report Type: Spontaneous
  Country: US (occurrence: US)
  Receive Date: 20120926
  Receipt Date: 20130102
  Transmission Date: 20140127
  Serious: No
  Sender: FDA-Public Use
  Company Number: US-ROXANE LABORATORIES, INC.-2012-RO-01885RO

PATIENT
  Sex: Male

DRUGS (1)
  1. LITHIUM CARBONATE [Suspect]
     Indication: BIPOLAR DISORDER
     Dosage: 1350 MG
     Route: 048

REACTIONS (5)
  - Mania [Recovered/Resolved]
  - Antipsychotic drug level increased [Recovered/Resolved]
  - Feeling abnormal [Recovered/Resolved]
  - Product odour abnormal [Not Recovered/Not Resolved]
  - Product quality issue [Recovered/Resolved]
